FAERS Safety Report 6236508-6 (Version None)
Quarter: 2009Q2

REPORT INFORMATION
  Report Type: 
  Country: None (occurrence: None)
  Receive Date: 20090619
  Receipt Date: 20090615
  Transmission Date: 20091009
  Serious: Yes (Other)
  Sender: FDA-Public Use
  Company Number: A0779211A

PATIENT
  Age: 82 Year
  Sex: Female
  Weight: 81.8 kg

DRUGS (3)
  1. REQUIP XL [Suspect]
     Indication: PARKINSON'S DISEASE
     Dosage: 14MG VARIABLE DOSE
     Route: 048
     Dates: start: 20081002
  2. SINEMET [Concomitant]
     Indication: PARKINSON'S DISEASE
     Route: 048
  3. COMTAN [Concomitant]
     Dosage: 200MG THREE TIMES PER DAY
     Route: 048

REACTIONS (5)
  - CONVERSION DISORDER [None]
  - PARKINSONISM [None]
  - PHOBIA [None]
  - PSYCHOTIC DISORDER [None]
  - STARING [None]
